FAERS Safety Report 24757005 (Version 1)
Quarter: 2024Q4

REPORT INFORMATION
  Report Type: Spontaneous
  Country: CN (occurrence: CN)
  Receive Date: 20241220
  Receipt Date: 20241220
  Transmission Date: 20250114
  Serious: Yes (Death, Other)
  Sender: JOHNSON AND JOHNSON
  Company Number: CN-JNJFOC-20241228305

PATIENT

DRUGS (6)
  1. SPORANOX [Suspect]
     Active Substance: ITRACONAZOLE
     Indication: Acquired immunodeficiency syndrome
  2. SPORANOX [Suspect]
     Active Substance: ITRACONAZOLE
     Indication: Fungal infection
  3. VORICONAZOLE [Concomitant]
     Active Substance: VORICONAZOLE
     Indication: Acquired immunodeficiency syndrome
     Route: 065
  4. VORICONAZOLE [Concomitant]
     Active Substance: VORICONAZOLE
     Indication: Fungal infection
  5. AMPHOTERICIN B [Concomitant]
     Active Substance: AMPHOTERICIN B
     Indication: Acquired immunodeficiency syndrome
     Route: 065
  6. AMPHOTERICIN B [Concomitant]
     Active Substance: AMPHOTERICIN B
     Indication: Fungal infection

REACTIONS (2)
  - Treatment failure [Fatal]
  - Off label use [Unknown]
